FAERS Safety Report 8392014-4 (Version None)
Quarter: 2012Q2

REPORT INFORMATION
  Report Type: 
  Country: None (occurrence: None)
  Receive Date: 20120529
  Receipt Date: 20120524
  Transmission Date: 20120825
  Serious: Yes (Death)
  Sender: FDA-Public Use
  Company Number: FR-ROCHE-1072234

PATIENT

DRUGS (1)
  1. MABTHERA [Suspect]
     Indication: B-CELL LYMPHOMA

REACTIONS (1)
  - ACUTE MYELOID LEUKAEMIA [None]
